FAERS Safety Report 10216884 (Version 2)
Quarter: 2014Q2

REPORT INFORMATION
  Report Type: Other
  Country: CA (occurrence: CA)
  Receive Date: 20140604
  Receipt Date: 20140604
  Transmission Date: 20141212
  Serious: Yes (Hospitalization, Other)
  Sender: FDA-Public Use
  Company Number: CA-GSKPPD-2014GSK039297

PATIENT
  Age: 69 Year
  Sex: Male
  Weight: 103.4 kg

DRUGS (1)
  1. AVANDIA [Suspect]
     Indication: DIABETES MELLITUS
     Route: 048
     Dates: start: 20080306

REACTIONS (2)
  - Cardiac failure congestive [Recovered/Resolved]
  - Cardiomegaly [Recovered/Resolved]
